FAERS Safety Report 9994047 (Version 2)
Quarter: 2014Q1

REPORT INFORMATION
  Report Type: Spontaneous
  Country: US (occurrence: US)
  Receive Date: 20140310
  Receipt Date: 20140310
  Transmission Date: 20141002
  Serious: No
  Sender: FDA-Public Use
  Company Number: US-AMGEN-USASP2013069416

PATIENT
  Age: 101 Year
  Sex: Female
  Weight: 58 kg

DRUGS (13)
  1. SENSIPAR [Suspect]
     Indication: HYPERPARATHYROIDISM SECONDARY
     Dosage: 30 MG, QOD
     Route: 065
     Dates: start: 20130620, end: 20130826
  2. EPOGEN [Concomitant]
     Indication: PRODUCT USED FOR UNKNOWN INDICATION
     Route: 065
  3. ATORVASTATIN [Concomitant]
  4. DIAVIT [Concomitant]
  5. ISOSORBIDE MONONITRATE [Concomitant]
  6. NORVASC [Concomitant]
  7. RENVELA [Concomitant]
  8. CLONIDINE [Concomitant]
  9. DICLOFENAC [Concomitant]
  10. NORCO [Concomitant]
  11. AMITIZA [Concomitant]
  12. TRIAMCINOLONE                      /00031903/ [Concomitant]
  13. HECTOROL [Concomitant]

REACTIONS (1)
  - Stomatitis [Recovered/Resolved]
